FAERS Safety Report 5101587-6 (Version None)
Quarter: 2006Q3

REPORT INFORMATION
  Report Type: 
  Country: None (occurrence: None)
  Receive Date: 20060731
  Receipt Date: 20060523
  Transmission Date: 20061208
  Serious: No
  Sender: FDA-Public Use
  Company Number: 2006PV014319

PATIENT
  Age: 60 Year
  Sex: Female
  Weight: 142.8831 kg

DRUGS (8)
  1. BYETTA [Suspect]
     Indication: DIABETES MELLITUS NON-INSULIN-DEPENDENT
     Dosage: SEE IMAGE
     Route: 058
     Dates: start: 20050101, end: 20060101
  2. BYETTA [Suspect]
     Indication: DIABETES MELLITUS NON-INSULIN-DEPENDENT
     Dosage: SEE IMAGE
     Route: 058
     Dates: start: 20060101, end: 20060101
  3. BYETTA [Suspect]
     Indication: DIABETES MELLITUS NON-INSULIN-DEPENDENT
     Dosage: SEE IMAGE
     Route: 058
     Dates: start: 20060101, end: 20060420
  4. COUMADIN [Concomitant]
  5. PLAVIX [Concomitant]
  6. GLIMEPIRIDE [Concomitant]
  7. ACTOS [Concomitant]
  8. . [Concomitant]

REACTIONS (3)
  - ERYTHEMA [None]
  - INJECTION SITE ERYTHEMA [None]
  - NAUSEA [None]
